FAERS Safety Report 4882494-0 (Version None)
Quarter: 2006Q1

REPORT INFORMATION
  Report Type: 
  Country: None (occurrence: None)
  Receive Date: 20060113
  Receipt Date: 20051231
  Transmission Date: 20060701
  Serious: Yes (Hospitalization, Other)
  Sender: FDA-Public Use
  Company Number: 2005133148

PATIENT
  Age: 26 Year
  Sex: Male

DRUGS (2)
  1. GEODON [Suspect]
     Indication: SCHIZOPHRENIA
     Dosage: 140 MG (2 IN 1 D), ORAL
     Route: 048
     Dates: start: 20050914, end: 20050901
  2. TRAZODONE HCL [Suspect]
     Indication: INSOMNIA
     Dosage: 50 MG (ONE TIME ONLY), UNKNOWN
     Dates: start: 20050917

REACTIONS (3)
  - CONFUSIONAL STATE [None]
  - FALL [None]
  - INSOMNIA [None]
